FAERS Safety Report 6474753-5 (Version None)
Quarter: 2009Q4

REPORT INFORMATION
  Report Type: 
  Country: None (occurrence: None)
  Receive Date: 20091204
  Receipt Date: 20091124
  Transmission Date: 20100525
  Serious: Yes (Hospitalization)
  Sender: FDA-Public Use
  Company Number: IT-JNJFOC-20091006729

PATIENT
  Sex: Female

DRUGS (2)
  1. CONTRAMAL [Suspect]
     Indication: BACK PAIN
     Route: 048
     Dates: start: 20090910, end: 20090920
  2. CELEBREX [Suspect]
     Indication: BACK PAIN
     Route: 048

REACTIONS (1)
  - ABDOMINAL PAIN UPPER [None]
